FAERS Safety Report 6717529-3 (Version None)
Quarter: 2010Q2

REPORT INFORMATION
  Report Type: 
  Country: None (occurrence: None)
  Receive Date: 20100503
  Receipt Date: 20100423
  Transmission Date: 20101027
  Serious: Yes (Other)
  Sender: FDA-Public Use
  Company Number: 2010SP000423

PATIENT
  Age: 34 Year
  Sex: Female
  Weight: 90.9 kg

DRUGS (4)
  1. CICLESONIDE HFA [Suspect]
     Dosage: 160 UG NASAL
     Route: 045
     Dates: start: 20091006, end: 20100204
  2. BENADRYL [Concomitant]
  3. MUCINEX [Concomitant]
  4. CLARITIN [Concomitant]

REACTIONS (3)
  - ABORTION SPONTANEOUS [None]
  - DRUG EXPOSURE DURING PREGNANCY [None]
  - PREGNANCY [None]
